FAERS Safety Report 7896112-0 (Version None)
Quarter: 2011Q4

REPORT INFORMATION
  Report Type: 
  Country: None (occurrence: None)
  Receive Date: 20111106
  Receipt Date: 20110906
  Transmission Date: 20120403
  Serious: No
  Sender: FDA-Public Use
  Company Number: US-AMGEN-USASP2011045538

PATIENT
  Age: 47 Year
  Sex: Female

DRUGS (3)
  1. ZYRTEC [Concomitant]
  2. CLARITIN                           /00413701/ [Concomitant]
  3. ENBREL [Suspect]
     Indication: PSORIATIC ARTHROPATHY
     Dosage: 50 MG, 2 TIMES/WK
     Dates: start: 20110801

REACTIONS (4)
  - INJECTION SITE SWELLING [None]
  - PRURITUS GENERALISED [None]
  - INJECTION SITE ERYTHEMA [None]
  - INJECTION SITE RASH [None]
